FAERS Safety Report 8483125-3 (Version None)
Quarter: 2012Q3

REPORT INFORMATION
  Report Type: 
  Country: None (occurrence: None)
  Receive Date: 20120702
  Receipt Date: 20120626
  Transmission Date: 20120928
  Serious: Yes (Hospitalization)
  Sender: FDA-Public Use
  Company Number: US-JNJFOC-20120607709

PATIENT
  Sex: Male
  Weight: 67.59 kg

DRUGS (6)
  1. XARELTO [Suspect]
     Indication: ATRIAL FIBRILLATION
     Route: 048
     Dates: start: 20120413
  2. METFORMIN HCL [Concomitant]
  3. CRESTOR [Concomitant]
  4. METOPROLOL SUCCINATE [Concomitant]
  5. XARELTO [Suspect]
     Indication: CEREBROVASCULAR ACCIDENT PROPHYLAXIS
     Route: 048
     Dates: start: 20120413
  6. LISINOPRIL [Concomitant]

REACTIONS (1)
  - SUBDURAL HAEMATOMA [None]
